FAERS Safety Report 5705747-2 (Version None)
Quarter: 2008Q2

REPORT INFORMATION
  Report Type: 
  Country: None (occurrence: None)
  Receive Date: 20080415
  Receipt Date: 20080411
  Transmission Date: 20081010
  Serious: Yes (Hospitalization)
  Sender: FDA-Public Use
  Company Number: GB-ASTRAZENECA-2008GB00691

PATIENT
  Age: 85 Year
  Sex: Male

DRUGS (4)
  1. SEROQUEL [Suspect]
     Indication: MOOD SWINGS
     Dosage: 25 MG
     Route: 048
     Dates: start: 20080301
  2. LODINE SR [Concomitant]
  3. ASPIRIN [Concomitant]
  4. RAMIPRIL [Concomitant]

REACTIONS (8)
  - DEHYDRATION [None]
  - DIZZINESS [None]
  - HEART RATE INCREASED [None]
  - HYPOTENSION [None]
  - ILL-DEFINED DISORDER [None]
  - INCONTINENCE [None]
  - SOMNOLENCE [None]
  - UNRESPONSIVE TO STIMULI [None]
